FAERS Safety Report 6924518-2 (Version None)
Quarter: 2010Q3

REPORT INFORMATION
  Report Type: 
  Country: None (occurrence: None)
  Receive Date: 20100816
  Receipt Date: 20100806
  Transmission Date: 20110219
  Serious: Yes (Hospitalization, Other)
  Sender: FDA-Public Use
  Company Number: US-BIOGENIDEC-2010BI024841

PATIENT
  Age: 35 Year
  Sex: Male
  Weight: 61 kg

DRUGS (10)
  1. AVONEX [Suspect]
     Indication: MULTIPLE SCLEROSIS
     Route: 030
     Dates: start: 20100105
  2. VALIUM [Concomitant]
     Route: 048
  3. BENADRYL [Concomitant]
     Indication: PREMEDICATION
     Route: 048
  4. PROZAC [Concomitant]
     Indication: DEPRESSION
  5. ZOFRAN [Concomitant]
     Indication: NAUSEA
     Route: 048
  6. TIMOPTIC [Concomitant]
  7. ATROPISOL [Concomitant]
  8. FLOMAX [Concomitant]
  9. BACLOFEN [Concomitant]
  10. PROTONIX [Concomitant]

REACTIONS (3)
  - CONVULSION [None]
  - EYE INJURY [None]
  - RETINAL DETACHMENT [None]
